FAERS Safety Report 17112737 (Version 2)
Quarter: 2022Q1

REPORT INFORMATION
  Report Type: Spontaneous
  Country: CA (occurrence: CA)
  Receive Date: 20191204
  Receipt Date: 20220105
  Transmission Date: 20220423
  Serious: Yes (Other)
  Sender: FDA-Public Use
  Company Number: CA-NAPPMUNDI-CAN-2019-0010437

PATIENT
  Age: 23 Year
  Sex: Male

DRUGS (2)
  1. MORPHINE SULFATE [Suspect]
     Active Substance: MORPHINE SULFATE
     Indication: Substance abuse
     Dosage: UNK
     Route: 065
  2. FENTANYL [Suspect]
     Active Substance: FENTANYL
     Indication: Substance abuse
     Dosage: UNK
     Route: 065

REACTIONS (3)
  - Psychomotor skills impaired [Unknown]
  - Substance abuse [Unknown]
  - Somnolence [Unknown]
